FAERS Safety Report 6607686-1 (Version None)
Quarter: 2010Q1

REPORT INFORMATION
  Report Type: 
  Country: None (occurrence: None)
  Receive Date: 20100301
  Receipt Date: 20100217
  Transmission Date: 20100710
  Serious: Yes (Death)
  Sender: FDA-Public Use
  Company Number: CA-ELI_LILLY_AND_COMPANY-CA201002004701

PATIENT
  Age: 16 Year
  Sex: Male

DRUGS (3)
  1. ZYPREXA [Suspect]
  2. AMOXICILLIN [Concomitant]
  3. ACCUTANE [Concomitant]
     Indication: ACNE

REACTIONS (2)
  - COMPLETED SUICIDE [None]
  - OFF LABEL USE [None]
